FAERS Safety Report 7611458-9 (Version None)
Quarter: 2011Q3

REPORT INFORMATION
  Report Type: 
  Country: None (occurrence: None)
  Receive Date: 20110715
  Receipt Date: 20110708
  Transmission Date: 20111222
  Serious: Yes (Other)
  Sender: FDA-Public Use
  Company Number: BR-PFIZER INC-2009295276

PATIENT
  Age: 45 Year
  Sex: Male
  Weight: 79.6 kg

DRUGS (62)
  1. BLINDED ANIDULAFUNGIN [Suspect]
     Indication: ASPERGILLOSIS
     Dosage: UNK
     Route: 042
     Dates: start: 20091103, end: 20091107
  2. METOCLOPRAMIDE [Concomitant]
     Dosage: UNK
     Dates: start: 20091008, end: 20091031
  3. FUROSEMIDE [Concomitant]
     Dosage: UNK
     Route: 042
     Dates: start: 20091104, end: 20091104
  4. FUROSEMIDE [Concomitant]
     Dosage: UNK
     Route: 042
     Dates: start: 20091105, end: 20091107
  5. DEXCHLORPHENIRAMINE [Concomitant]
     Dosage: UNK
     Route: 048
     Dates: start: 20091026, end: 20091101
  6. TETRACAINE [Concomitant]
     Dosage: UNK
     Route: 042
     Dates: start: 20091027, end: 20091101
  7. HYOSCINE [Concomitant]
     Dosage: UNK
     Route: 042
     Dates: start: 20091027, end: 20091101
  8. HYOSCINE [Concomitant]
     Dosage: UNK
     Route: 042
     Dates: start: 20091101
  9. MAGNESIUM W/POTASSIUM [Concomitant]
     Dosage: UNK
     Route: 042
     Dates: start: 20091031, end: 20091101
  10. AMPHOTERICINE B, LIPOSOME [Concomitant]
     Dosage: UNK
     Route: 042
     Dates: start: 20091031, end: 20091101
  11. ENALAPRIL [Concomitant]
     Dosage: UNK
     Route: 048
     Dates: start: 20091112, end: 20091130
  12. DEXPANTHENOL [Concomitant]
     Dosage: UNK
     Route: 061
     Dates: start: 20091014, end: 20091104
  13. ONDANSETRON [Concomitant]
     Dosage: UNK
     Route: 042
     Dates: start: 20091014
  14. MINERAL OIL [Concomitant]
     Dosage: UNK
     Route: 048
     Dates: start: 20091019, end: 20091028
  15. LOPERAMIDE [Concomitant]
     Dosage: UNK
     Route: 048
     Dates: start: 20091026, end: 20091031
  16. IMIPENEM [Concomitant]
     Dosage: UNK
     Route: 042
     Dates: start: 20091027, end: 20091105
  17. TRAMADOL [Concomitant]
     Dosage: UNK
     Route: 048
     Dates: start: 20091008, end: 20091101
  18. NYSTATIN [Concomitant]
     Dosage: UNK
     Route: 048
     Dates: start: 20091014, end: 20091101
  19. BENZYDAMINE [Concomitant]
     Dosage: UNK
     Route: 061
     Dates: start: 20091014, end: 20091104
  20. HYDROCORTISONE [Concomitant]
     Dosage: UNK
     Route: 042
     Dates: start: 20091027, end: 20091101
  21. SULFAMETHOXAZOLE AND TRIMETHOPRIM [Concomitant]
     Dosage: UNK
     Route: 048
     Dates: start: 20091022
  22. BLINDED NO SUBJECT DRUG [Suspect]
     Indication: ASPERGILLOSIS
     Dosage: UNK
     Route: 042
     Dates: start: 20091103, end: 20091107
  23. VORICONAZOLE [Suspect]
     Dosage: 320 MG, SINGLE
     Route: 042
     Dates: start: 20091104, end: 20091104
  24. OMEPRAZOLE [Concomitant]
     Dosage: UNK
     Route: 048
     Dates: start: 20091008
  25. LOPERAMIDE [Concomitant]
     Dosage: UNK
     Route: 048
     Dates: start: 20091019, end: 20091027
  26. ACYCLOVIR [Concomitant]
     Dosage: UNK
     Route: 042
     Dates: start: 20091027, end: 20091101
  27. ACYCLOVIR [Concomitant]
     Dosage: UNK
     Route: 048
     Dates: start: 20091101
  28. PIPERACILLIN AND TAZOBACTAM [Concomitant]
     Dosage: UNK
     Route: 042
     Dates: start: 20091022, end: 20091026
  29. VANCOMYCIN [Concomitant]
     Dosage: UNK
     Route: 042
     Dates: start: 20091027, end: 20091101
  30. FILGRASTIM [Concomitant]
     Dosage: UNK
     Route: 042
     Dates: start: 20091027, end: 20091101
  31. FLUCONAZOLE [Concomitant]
     Dosage: UNK
     Route: 042
     Dates: start: 20091029, end: 20091031
  32. MAGNESIUM W/POTASSIUM [Concomitant]
     Dosage: UNK
     Route: 042
     Dates: start: 20091101, end: 20091103
  33. FLUNITRAZEPAM [Concomitant]
     Dosage: UNK
     Route: 048
     Dates: start: 20091105
  34. MAGNESIUM SULFATE [Concomitant]
     Dosage: UNK
     Route: 042
     Dates: start: 20091107
  35. DIPYRONE [Concomitant]
     Dosage: UNK
     Route: 048
     Dates: start: 20091008, end: 20091026
  36. METOCLOPRAMIDE [Concomitant]
     Dosage: UNK
     Route: 042
     Dates: start: 20091104
  37. GLUCOSE/ MAGNESIUM CL. HEXAHYDRATE/POTASSIUM CL./SODIUM CL. [Concomitant]
     Dosage: UNK
     Route: 042
     Dates: start: 20091019, end: 20091031
  38. ACYCLOVIR [Concomitant]
     Dosage: UNK
     Route: 042
     Dates: start: 20091026, end: 20091027
  39. PIPERACILLIN AND TAZOBACTAM [Concomitant]
     Dosage: UNK
     Route: 042
     Dates: start: 20091026, end: 20091028
  40. POTASSIUM CHLORIDE [Concomitant]
     Dosage: UNK
     Route: 048
     Dates: start: 20091102, end: 20091104
  41. PROPRANOLOL [Concomitant]
     Dosage: UNK
     Route: 048
     Dates: start: 20091105, end: 20091130
  42. POTASSIUM CHLORIDE [Concomitant]
     Dosage: UNK
     Route: 042
     Dates: start: 20091106
  43. LOSARTAN [Concomitant]
     Dosage: UNK
     Route: 048
     Dates: start: 20091107, end: 20091130
  44. VORICONAZOLE [Suspect]
     Dosage: 300 MG, 2X/DAY
     Route: 042
     Dates: start: 20091105, end: 20091107
  45. VORICONAZOLE [Suspect]
     Dosage: 300 MG, SINGLE
     Route: 042
     Dates: start: 20091108, end: 20091108
  46. DIMENHYDRINATE - SLOW RELEASE ^RATIOPHARM^ [Concomitant]
     Dosage: UNK
     Route: 042
     Dates: start: 20091014, end: 20091101
  47. FUROSEMIDE [Concomitant]
     Dosage: UNK
     Route: 042
     Dates: start: 20091028, end: 20091031
  48. FUROSEMIDE [Concomitant]
     Dosage: UNK
     Route: 042
     Dates: start: 20091107
  49. METRONIDAZOLE [Concomitant]
     Dosage: UNK
     Route: 048
     Dates: start: 20091030, end: 20091103
  50. FLUNITRAZEPAM [Concomitant]
     Dosage: UNK
     Route: 048
     Dates: start: 20091104, end: 20091105
  51. ALBUTEROL SULFATE AND IPRATROPIUM BROMIDE [Concomitant]
     Dosage: UNK
     Route: 045
     Dates: start: 20091109
  52. VORICONAZOLE [Suspect]
     Indication: ASPERGILLOSIS
     Dosage: 475 MG, 1X/DAY
     Route: 042
     Dates: start: 20091103, end: 20091104
  53. HYDROCORTISONE [Concomitant]
     Dosage: UNK
     Route: 042
     Dates: start: 20091019, end: 20091026
  54. ACYCLOVIR [Concomitant]
     Dosage: UNK
     Route: 048
     Dates: start: 20091022, end: 20091026
  55. AMPHOTERICIN B [Concomitant]
     Dosage: UNK
     Route: 042
     Dates: start: 20091031, end: 20091031
  56. HEXAMIDINE [Concomitant]
     Dosage: UNK
     Dates: start: 20091027, end: 20091101
  57. PLACEBO [Suspect]
     Indication: ASPERGILLOSIS
     Dosage: UNK
     Route: 042
     Dates: start: 20091103, end: 20091107
  58. DIPYRONE [Concomitant]
     Dosage: UNK
     Route: 042
     Dates: start: 20091022
  59. ZOLPIDEM [Concomitant]
     Dosage: UNK
     Route: 048
     Dates: start: 20091008, end: 20091104
  60. ONDANSETRON [Concomitant]
     Dosage: UNK
     Route: 042
     Dates: start: 20091104
  61. PARACETAMOL [Concomitant]
     Dosage: UNK
     Route: 048
     Dates: start: 20091031, end: 20091101
  62. CLONIDINE [Concomitant]
     Dosage: UNK
     Route: 048
     Dates: start: 20091107

REACTIONS (1)
  - NEPHRITIC SYNDROME [None]
